FAERS Safety Report 24985683 (Version 1)
Quarter: 2025Q1

REPORT INFORMATION
  Report Type: Spontaneous
  Country: US (occurrence: None)
  Receive Date: 20250217
  Receipt Date: 20250217
  Transmission Date: 20250409
  Serious: Yes (Disabling, Other)
  Sender: FDA-CTU
  Company Number: None

PATIENT
  Age: 66 Year
  Sex: Female
  Weight: 78.75 kg

DRUGS (12)
  1. RECLAST [Suspect]
     Active Substance: ZOLEDRONIC ACID
  2. SINGULAIR [Concomitant]
     Active Substance: MONTELUKAST SODIUM
  3. SKELAXIN [Concomitant]
     Active Substance: METAXALONE
  4. CELEBREX [Concomitant]
     Active Substance: CELECOXIB
  5. NEXIUM [Concomitant]
     Active Substance: ESOMEPRAZOLE MAGNESIUM
  6. CRESTOR [Concomitant]
     Active Substance: ROSUVASTATIN CALCIUM
  7. ALLEGRA [Concomitant]
     Active Substance: FEXOFENADINE HYDROCHLORIDE
  8. ALBUTEROL [Concomitant]
     Active Substance: ALBUTEROL
  9. ADVAIR HFA [Suspect]
     Active Substance: FLUTICASONE PROPIONATE\SALMETEROL XINAFOATE
  10. TYLENOL PM [Suspect]
     Active Substance: ACETAMINOPHEN\DIPHENHYDRAMINE
  11. VITAMINS [Concomitant]
     Active Substance: VITAMINS
  12. FOLATE SODIUM [Concomitant]
     Active Substance: FOLATE SODIUM

REACTIONS (8)
  - Chills [None]
  - Pyrexia [None]
  - Malaise [None]
  - Pain in extremity [None]
  - Arthralgia [None]
  - Arthralgia [None]
  - Movement disorder [None]
  - Mobility decreased [None]

NARRATIVE: CASE EVENT DATE: 20250214
